FAERS Safety Report 10770351 (Version 3)
Quarter: 2015Q2

REPORT INFORMATION
  Report Type: Spontaneous
  Country: US (occurrence: PR)
  Receive Date: 20150206
  Receipt Date: 20150623
  Transmission Date: 20150821
  Serious: Yes (Hospitalization, Other)
  Sender: FDA-Public Use
  Company Number: PR-TEVA-537878USA

PATIENT
  Age: 71 Year
  Sex: Female

DRUGS (8)
  1. REFRESH [Concomitant]
     Active Substance: UNSPECIFIED INGREDIENT
     Dosage: 0.5-1%
  2. RESTASIS [Concomitant]
     Active Substance: CYCLOSPORINE
     Dosage: 2 GTT DAILY; OU
  3. LOSARTAN [Concomitant]
     Active Substance: LOSARTAN
  4. ALENDRONIC ACID [Suspect]
     Active Substance: ALENDRONIC ACID
     Route: 065
  5. NAPROXEN. [Concomitant]
     Active Substance: NAPROXEN
  6. SYNTHROID [Concomitant]
     Active Substance: LEVOTHYROXINE SODIUM
  7. BRIMONIDINE [Concomitant]
     Active Substance: BRIMONIDINE\BRIMONIDINE TARTRATE
     Dosage: 2 GTT DAILY; OU
  8. FEXOFENADINE [Concomitant]
     Active Substance: FEXOFENADINE\FEXOFENADINE HYDROCHLORIDE

REACTIONS (8)
  - Eye infection [Unknown]
  - Scleritis [Recovered/Resolved]
  - Vision blurred [Recovered/Resolved]
  - Dry eye [Unknown]
  - Eye pain [Recovered/Resolved]
  - Cataract [Unknown]
  - Uveitis [Recovered/Resolved]
  - Glaucoma [Unknown]

NARRATIVE: CASE EVENT DATE: 20140804
